FAERS Safety Report 22078186 (Version 1)
Quarter: 2023Q1

REPORT INFORMATION
  Report Type: Spontaneous
  Country: DE (occurrence: DE)
  Receive Date: 20230309
  Receipt Date: 20230309
  Transmission Date: 20230417
  Serious: Yes (Other)
  Sender: FDA-Public Use
  Company Number: None

PATIENT
  Age: 82 Year
  Sex: Female
  Weight: 54 kg

DRUGS (6)
  1. METHOTREXATE SODIUM [Suspect]
     Active Substance: METHOTREXATE SODIUM
     Dosage: THE MTX WAS APPLIED ACCORDING TO THE INTENDED DOSING SCHEDULE
     Dates: start: 20220819, end: 20221201
  2. PREDNISONE [Concomitant]
     Active Substance: PREDNISONE
     Dosage: UNK
     Dates: start: 20220812
  3. FOL [Concomitant]
     Dosage: PERMANENT MEDICATION
  4. CHOLECALCIFEROL [Concomitant]
     Active Substance: CHOLECALCIFEROL
     Dosage: PERMANENT MEDICATION
  5. TORSEMIDE [Concomitant]
     Active Substance: TORSEMIDE
     Dosage: PERMANENT MEDICATION
  6. AMBROXOL HYDROCHLORIDE [Concomitant]
     Active Substance: AMBROXOL HYDROCHLORIDE
     Dosage: UNK
     Dates: start: 20220917, end: 20220924

REACTIONS (7)
  - Polyneuropathy [Recovering/Resolving]
  - Arthritis [Recovering/Resolving]
  - Muscular weakness [Recovering/Resolving]
  - Dysaesthesia [Recovering/Resolving]
  - Drug ineffective [Unknown]
  - Mobility decreased [Recovering/Resolving]
  - Joint dislocation [Recovering/Resolving]

NARRATIVE: CASE EVENT DATE: 20220919
